FAERS Safety Report 16525091 (Version 1)
Quarter: 2019Q3

REPORT INFORMATION
  Report Type: Spontaneous
  Country: US (occurrence: US)
  Receive Date: 20190702
  Receipt Date: 20190702
  Transmission Date: 20191004
  Serious: Yes (Other)
  Sender: FDA-Public Use
  Company Number: PHHY2019US146338

PATIENT
  Age: 46 Year
  Sex: Male

DRUGS (2)
  1. METOPROLOL. [Suspect]
     Active Substance: METOPROLOL
     Indication: SINUS NODE DYSFUNCTION
     Dosage: HIGHER DOSES
     Route: 065
  2. IVABRADINE [Suspect]
     Active Substance: IVABRADINE
     Indication: SINUS NODE DYSFUNCTION
     Dosage: LOW DOSES
     Route: 065

REACTIONS (3)
  - Fatigue [Recovering/Resolving]
  - Treatment failure [Recovering/Resolving]
  - Dyspnoea [Recovering/Resolving]
